FAERS Safety Report 16520751 (Version 1)
Quarter: 2019Q3

REPORT INFORMATION
  Report Type: Spontaneous
  Country: US (occurrence: US)
  Receive Date: 20190702
  Receipt Date: 20190702
  Transmission Date: 20191004
  Serious: Yes (Death)
  Sender: FDA-Public Use
  Company Number: US-LUNDBECK-DKLU3000279

PATIENT
  Age: 82 Year
  Sex: Male

DRUGS (2)
  1. NORTHERA [Suspect]
     Active Substance: DROXIDOPA
     Dosage: 300MG TID AND 200MG TID
     Route: 048
     Dates: start: 20161010, end: 20190603
  2. NORTHERA [Suspect]
     Active Substance: DROXIDOPA
     Indication: PARKINSON^S DISEASE
     Dosage: 300MG TID AND 200MG TID
     Route: 048
     Dates: start: 20161010, end: 20190603

REACTIONS (1)
  - Death [Fatal]

NARRATIVE: CASE EVENT DATE: 20190613
